FAERS Safety Report 9231725 (Version 2)
Quarter: 2013Q2

REPORT INFORMATION
  Report Type: Report from Study
  Country: CA (occurrence: CA)
  Receive Date: 20130415
  Receipt Date: 20130508
  Transmission Date: 20140414
  Serious: Yes (Other)
  Sender: FDA-Public Use
  Company Number: CA-ROCHE-1146524

PATIENT
  Age: 57 Year
  Sex: Female
  Weight: 47.6 kg

DRUGS (17)
  1. TRAMACET [Concomitant]
     Route: 065
  2. CYCLOBENZAPRINE [Concomitant]
     Indication: MUSCLE SPASMS
     Route: 065
  3. VITAMIN B6 [Concomitant]
  4. VITAMIN B12 [Concomitant]
  5. COPPER [Concomitant]
  6. SELENIUM [Concomitant]
  7. FLAXSEED [Concomitant]
  8. FISH OIL [Concomitant]
  9. DIPHENHYDRAMINE HCL [Concomitant]
     Route: 048
     Dates: start: 20100721
  10. ACETAMINOPHEN [Concomitant]
     Route: 048
     Dates: start: 20100721
  11. METHYLPREDNISOLONE [Concomitant]
     Route: 042
     Dates: start: 20100721
  12. RITUXAN [Suspect]
     Indication: RHEUMATOID ARTHRITIS
     Route: 042
     Dates: start: 20100721
  13. PREDNISONE [Concomitant]
  14. HYDROXYCHLOROQUINE [Concomitant]
  15. ZOLOFT [Concomitant]
  16. LEVOTHYROXINE SODIUM [Concomitant]
  17. ZOPICLONE [Concomitant]

REACTIONS (3)
  - Arthropathy [Not Recovered/Not Resolved]
  - Ear pain [Not Recovered/Not Resolved]
  - Oropharyngeal pain [Not Recovered/Not Resolved]
